FAERS Safety Report 6123857-5 (Version None)
Quarter: 2009Q1

REPORT INFORMATION
  Report Type: 
  Country: None (occurrence: None)
  Receive Date: 20090318
  Receipt Date: 20090318
  Transmission Date: 20090719
  Serious: Yes (Other)
  Sender: FDA-Public Use
  Company Number: None

PATIENT
  Age: 68 Year
  Sex: Female
  Weight: 82.1011 kg

DRUGS (2)
  1. GEMZAR [Suspect]
     Indication: BREAST CANCER
     Dosage: 1490 MG IV Q 3 WEEK IV
     Route: 042
     Dates: start: 20090203, end: 20090313
  2. NAVELBINE [Suspect]
     Dosage: 46.5 MG IV Q 3 WEEK IV
     Route: 042
     Dates: start: 20090203, end: 20090313

REACTIONS (2)
  - NAUSEA [None]
  - VOMITING [None]
